FAERS Safety Report 13701872 (Version 2)
Quarter: 2017Q3

REPORT INFORMATION
  Report Type: Report from Study
  Country: CO (occurrence: CO)
  Receive Date: 20170629
  Receipt Date: 20170816
  Transmission Date: 20171127
  Serious: Yes (Hospitalization, Other)
  Sender: FDA-Public Use
  Company Number: CO-AMGEN-COLSL2017096271

PATIENT
  Age: 17 Year
  Sex: Male

DRUGS (1)
  1. ARANESP [Suspect]
     Active Substance: DARBEPOETIN ALFA
     Indication: NEPHROGENIC ANAEMIA
     Dosage: 50 MUG, QWK
     Route: 058
     Dates: start: 20160826

REACTIONS (4)
  - Arteriovenous fistula site haemorrhage [Recovering/Resolving]
  - Arteriovenous fistula [Recovering/Resolving]
  - Abscess [Recovering/Resolving]
  - Haemoglobin decreased [Recovered/Resolved]

NARRATIVE: CASE EVENT DATE: 20170620
